FAERS Safety Report 24130797 (Version 1)
Quarter: 2024Q3

REPORT INFORMATION
  Report Type: Spontaneous
  Country: IT (occurrence: IT)
  Receive Date: 20240724
  Receipt Date: 20240724
  Transmission Date: 20241017
  Serious: Yes (Other)
  Sender: AUROBINDO
  Company Number: IT-AUROBINDO-AUR-APL-2024-036114

PATIENT
  Age: 72 Year

DRUGS (3)
  1. BISOPROLOL [Suspect]
     Active Substance: BISOPROLOL\BISOPROLOL FUMARATE
     Indication: Cardiac failure chronic
     Dosage: 5 MILLIGRAM, DAILY
     Route: 065
  2. EPLERENONE [Suspect]
     Active Substance: EPLERENONE
     Indication: Cardiac failure chronic
     Dosage: 25 MILLIGRAM, DAILY
     Route: 065
  3. SACUBITRIL\VALSARTAN [Suspect]
     Active Substance: SACUBITRIL\VALSARTAN
     Indication: Cardiac failure chronic
     Dosage: 1 DOSAGE FORM, 3 TIMES A DAY (49/51MG)
     Route: 065

REACTIONS (1)
  - Drug ineffective [Unknown]
